FAERS Safety Report 15955602 (Version 1)
Quarter: 2019Q1

REPORT INFORMATION
  Report Type: Spontaneous
  Country: US (occurrence: US)
  Receive Date: 20190212
  Receipt Date: 20190212
  Transmission Date: 20190417
  Serious: Yes (Hospitalization)
  Sender: FDA-Public Use
  Company Number: None

PATIENT
  Age: 66 Year
  Sex: Female
  Weight: 63 kg

DRUGS (3)
  1. ATENOLOL. [Suspect]
     Active Substance: ATENOLOL
     Indication: ATRIAL TACHYCARDIA
     Dosage: ?          QUANTITY:1 TABLET(S);?
     Route: 048
     Dates: start: 20180928, end: 20181006
  2. ROSUVASTATIN. [Concomitant]
     Active Substance: ROSUVASTATIN
  3. TENORMIN [Concomitant]
     Active Substance: ATENOLOL

REACTIONS (4)
  - Supraventricular tachycardia [None]
  - Product substitution issue [None]
  - Treatment failure [None]
  - Inability to afford medication [None]

NARRATIVE: CASE EVENT DATE: 20181006
